FAERS Safety Report 24768530 (Version 1)
Quarter: 2024Q4

REPORT INFORMATION
  Report Type: Spontaneous
  Country: CN (occurrence: CN)
  Receive Date: 20241224
  Receipt Date: 20241224
  Transmission Date: 20250115
  Serious: Yes (Other)
  Sender: NOVO NORDISK
  Company Number: None

PATIENT
  Age: 34 Year
  Sex: Male
  Weight: 70 kg

DRUGS (4)
  1. VICTOZA [Suspect]
     Active Substance: LIRAGLUTIDE
     Indication: Latent autoimmune diabetes in adults
     Dosage: 10 IU, QD
     Route: 058
     Dates: start: 20241119
  2. METFORMIN HYDROCHLORIDE [Concomitant]
     Active Substance: METFORMIN HYDROCHLORIDE
     Indication: Latent autoimmune diabetes in adults
     Dosage: 0.500G,TID
     Route: 048
     Dates: start: 20241119
  3. DAPAGLIFLOZIN [Concomitant]
     Active Substance: DAPAGLIFLOZIN
     Indication: Latent autoimmune diabetes in adults
     Dosage: 10 MG, QD
     Route: 048
     Dates: start: 20241119
  4. ACARBOSE [Concomitant]
     Active Substance: ACARBOSE
     Indication: Latent autoimmune diabetes in adults
     Dosage: 100 MG, TID
     Route: 048
     Dates: start: 20241119

REACTIONS (5)
  - Hyperhidrosis [Recovering/Resolving]
  - Palpitations [Recovering/Resolving]
  - Dizziness [Recovering/Resolving]
  - Nausea [Recovering/Resolving]
  - Vomiting [Recovering/Resolving]

NARRATIVE: CASE EVENT DATE: 20241128
